FAERS Safety Report 17899000 (Version 1)
Quarter: 2020Q2

REPORT INFORMATION
  Report Type: Spontaneous
  Country: GB (occurrence: GB)
  Receive Date: 20200616
  Receipt Date: 20200616
  Transmission Date: 20200714
  Serious: Yes (Hospitalization)
  Sender: FDA-Public Use
  Company Number: GB-TEVA-2020-GB-1247879

PATIENT
  Age: 58 Year
  Sex: Female
  Weight: 87 kg

DRUGS (8)
  1. LANSOPRAZOLE. [Suspect]
     Active Substance: LANSOPRAZOLE
     Indication: STRESS ULCER
     Dosage: 30 MG
     Route: 048
     Dates: start: 20200511, end: 20200517
  2. ATENOLOL. [Concomitant]
     Active Substance: ATENOLOL
  3. ATORVASTATIN [Concomitant]
     Active Substance: ATORVASTATIN
  4. AMLODIPINE [Concomitant]
     Active Substance: AMLODIPINE BESYLATE
  5. RAMIPRIL. [Concomitant]
     Active Substance: RAMIPRIL
  6. HUMULIN L [Concomitant]
     Active Substance: INSULIN HUMAN
  7. FUROSEMIDE. [Concomitant]
     Active Substance: FUROSEMIDE
  8. ENOXAPARIN SODIUM. [Concomitant]
     Active Substance: ENOXAPARIN SODIUM

REACTIONS (1)
  - Angioedema [Not Recovered/Not Resolved]

NARRATIVE: CASE EVENT DATE: 20200515
